FAERS Safety Report 25425847 (Version 1)
Quarter: 2025Q2

REPORT INFORMATION
  Report Type: Spontaneous
  Country: US (occurrence: US)
  Receive Date: 20250612
  Receipt Date: 20250612
  Transmission Date: 20250717
  Serious: No
  Sender: AMGEN
  Company Number: US-AMGEN-USASP2025111856

PATIENT
  Age: 71 Year
  Sex: Female

DRUGS (1)
  1. PROLIA [Suspect]
     Active Substance: DENOSUMAB
     Indication: Product used for unknown indication
     Dosage: UNK, Q6MO
     Route: 058
     Dates: start: 20250528

REACTIONS (6)
  - Asthenia [Unknown]
  - Fatigue [Unknown]
  - Influenza like illness [Unknown]
  - Chest discomfort [Unknown]
  - Gait disturbance [Unknown]
  - Oral pain [Unknown]

NARRATIVE: CASE EVENT DATE: 20250101
